FAERS Safety Report 9757493 (Version 5)
Quarter: 2014Q2

REPORT INFORMATION
  Report Type: Report from Study
  Country: US (occurrence: US)
  Receive Date: 20131215
  Receipt Date: 20140418
  Transmission Date: 20141212
  Serious: Yes (Death)
  Sender: FDA-Public Use
  Company Number: US-PFIZER INC-2013351338

PATIENT
  Age: 82 Year
  Sex: Male
  Weight: 65.8 kg

DRUGS (10)
  1. AXITINIB [Suspect]
     Indication: METASTATIC MALIGNANT MELANOMA
     Dosage: 3 MG, 2X/DAY
     Route: 048
     Dates: start: 20130220, end: 20130411
  2. METHADONE [Concomitant]
     Dosage: UNK
  3. MEGACE [Concomitant]
     Dosage: UNK
  4. OXYCODONE [Concomitant]
     Dosage: UNK
  5. HYDROCHLOROTHIAZIDE [Concomitant]
     Dosage: UNK
  6. ASPIRIN [Concomitant]
     Dosage: UNK
  7. SENNA [Concomitant]
     Dosage: UNK
  8. XARELTO [Concomitant]
     Dosage: UNK
  9. TYLENOL [Concomitant]
     Dosage: UNK
  10. METOPROLOL [Concomitant]
     Dosage: UNK

REACTIONS (1)
  - Death [Fatal]
